FAERS Safety Report 23898218 (Version 1)
Quarter: 2024Q2

REPORT INFORMATION
  Report Type: Spontaneous
  Country: US (occurrence: US)
  Receive Date: 20240524
  Receipt Date: 20240524
  Transmission Date: 20240716
  Serious: No
  Sender: FDA-Public Use
  Company Number: USA--2024-US-000173

PATIENT
  Age: 71 Year
  Sex: Female

DRUGS (1)
  1. AZELASTINE HYDROCHLORIDE OPHTHALMIC SOLUTION [Suspect]
     Active Substance: AZELASTINE HYDROCHLORIDE
     Dosage: 1 GGT OU BID
     Dates: start: 20240223, end: 20240301

REACTIONS (2)
  - Eye pruritus [Recovered/Resolved]
  - Eye irritation [Recovered/Resolved]

NARRATIVE: CASE EVENT DATE: 20240226
